FAERS Safety Report 16834761 (Version 2)
Quarter: 2020Q1

REPORT INFORMATION
  Report Type: Report from Study
  Country: US (occurrence: US)
  Receive Date: 20190920
  Receipt Date: 20200102
  Transmission Date: 20200409
  Serious: Yes (Death, Life-Threatening, Hospitalization)
  Sender: FDA-Public Use
  Company Number: US-BAUSCH-BL-2019-054650

PATIENT
  Sex: Male

DRUGS (1)
  1. XIFAXAN [Suspect]
     Active Substance: RIFAXIMIN
     Indication: HEPATIC ENCEPHALOPATHY
     Route: 048
     Dates: end: 201911

REACTIONS (5)
  - Liver disorder [Fatal]
  - Disease complication [Fatal]
  - Renal disorder [Fatal]
  - Inability to afford medication [Unknown]
  - Ammonia increased [Unknown]
